FAERS Safety Report 9769942 (Version 2)
Quarter: 2013Q4

REPORT INFORMATION
  Report Type: Spontaneous
  Country: US (occurrence: US)
  Receive Date: 20131218
  Receipt Date: 20131218
  Transmission Date: 20140711
  Serious: No
  Sender: FDA-Public Use
  Company Number: US-VERTEX PHARMACEUTICALS INC-AE-2011-000711

PATIENT
  Age: 59 Year
  Sex: Female

DRUGS (7)
  1. INCIVEK [Suspect]
     Indication: HEPATITIS C
     Route: 048
     Dates: start: 20110630
  2. PEGINTRON [Concomitant]
     Indication: HEPATITIS C
     Route: 058
     Dates: start: 20110630
  3. REBETOL [Concomitant]
     Indication: HEPATITIS C
     Dates: start: 20110630
  4. PAXIL [Concomitant]
  5. MVI [Concomitant]
  6. FERROUS SULFATE [Concomitant]
     Dates: start: 20110731
  7. ZOFRAN ODT [Concomitant]
     Route: 060

REACTIONS (6)
  - Inappropriate schedule of drug administration [Recovered/Resolved]
  - Influenza like illness [Recovered/Resolved]
  - Feeling abnormal [Recovered/Resolved]
  - Pain [Recovered/Resolved]
  - Fatigue [Recovered/Resolved]
  - Nausea [Recovered/Resolved]
